FAERS Safety Report 6990556-7 (Version None)
Quarter: 2010Q3

REPORT INFORMATION
  Report Type: 
  Country: None (occurrence: None)
  Receive Date: 20100916
  Receipt Date: 20100709
  Transmission Date: 20110219
  Serious: Yes (Hospitalization)
  Sender: FDA-Public Use
  Company Number: FR-PFIZER INC-2010085710

PATIENT
  Sex: Female

DRUGS (2)
  1. LYRICA [Suspect]
     Dosage: UNK
     Route: 048
     Dates: end: 20100403
  2. MORPHIN [Suspect]
     Dosage: 70 TO 100 MG PER DAY
     Route: 048
     Dates: end: 20100403

REACTIONS (1)
  - INTENTIONAL DRUG MISUSE [None]
